FAERS Safety Report 15424425 (Version 1)
Quarter: 2018Q3

REPORT INFORMATION
  Report Type: Report from Study
  Country: IT (occurrence: IT)
  Receive Date: 20180925
  Receipt Date: 20180925
  Transmission Date: 20181010
  Serious: Yes (Other)
  Sender: FDA-Public Use
  Company Number: IT-BAYER-2018-137505

PATIENT
  Age: 31 Year
  Sex: Female

DRUGS (1)
  1. ULTRAVIST [Suspect]
     Active Substance: IOPROMIDE
     Indication: POSITRON EMISSION TOMOGRAM
     Dosage: 80 ML, ONCE
     Route: 042
     Dates: start: 20180713, end: 20180713

REACTIONS (7)
  - Throat tightness [None]
  - Urticaria [None]
  - Dermatitis bullous [Recovered/Resolved]
  - Malaise [Recovered/Resolved]
  - Nausea [Recovered/Resolved]
  - Generalised anxiety disorder [None]
  - Oropharyngeal pain [Unknown]

NARRATIVE: CASE EVENT DATE: 20180713
